FAERS Safety Report 7860401-6 (Version None)
Quarter: 2011Q4

REPORT INFORMATION
  Report Type: 
  Country: None (occurrence: None)
  Receive Date: 20111027
  Receipt Date: 20111019
  Transmission Date: 20120403
  Serious: Yes (Other)
  Sender: FDA-Public Use
  Company Number: PHHY2011FR93362

PATIENT
  Sex: Female

DRUGS (2)
  1. GLEEVEC [Suspect]
     Dosage: 300 MG DAILY
  2. GLEEVEC [Suspect]
     Indication: MYELOID LEUKAEMIA
     Dosage: 400 MG, DAILY

REACTIONS (4)
  - HYPOPNOEA [None]
  - OBSTRUCTIVE AIRWAYS DISORDER [None]
  - COUGH [None]
  - DYSPNOEA [None]
